FAERS Safety Report 9525551 (Version 1)
Quarter: 2013Q3

REPORT INFORMATION
  Report Type: Spontaneous
  Country: JP (occurrence: JP)
  Receive Date: 20130916
  Receipt Date: 20130916
  Transmission Date: 20140515
  Serious: Yes (Life-Threatening)
  Sender: FDA-Public Use
  Company Number: JP-ASTRAZENECA-2013SE69049

PATIENT
  Age: 65 Year
  Sex: Male

DRUGS (7)
  1. DIPRIVAN [Suspect]
     Indication: ANAESTHESIA
     Route: 042
  2. XYLOCAINE [Suspect]
     Route: 008
  3. XYLOCAINE [Suspect]
     Route: 008
  4. ANAPEINE [Suspect]
     Route: 008
  5. FENTANYL [Suspect]
     Indication: ANAESTHESIA
  6. REMIFENTANIL [Suspect]
     Indication: ANAESTHESIA
  7. ROCURONIUM [Suspect]
     Indication: ANAESTHESIA

REACTIONS (1)
  - Ventricular fibrillation [Recovered/Resolved]
